FAERS Safety Report 10354205 (Version 1)
Quarter: 2014Q3

REPORT INFORMATION
  Report Type: Spontaneous
  Country: ES (occurrence: ES)
  Receive Date: 20140731
  Receipt Date: 20140731
  Transmission Date: 20150326
  Serious: Yes (Life-Threatening, Hospitalization)
  Sender: FDA-Public Use
  Company Number: ES-TEVA-496257ISR

PATIENT
  Age: 85 Year
  Sex: Female

DRUGS (10)
  1. VELMETIA 50 MG/1000 MG COMPRIMIDOS RECUBIERTOS CON PELICULA [Suspect]
     Active Substance: METFORMIN\SITAGLIPTIN
     Dosage: 2 DOSAGE FORMS DAILY;
     Route: 048
     Dates: start: 20111203, end: 2014
  2. ATORVASTATINA NORMON 20 MG COMPRIMIDOS RECUBIERTOS CON PELICULA EFG [Concomitant]
     Indication: DYSLIPIDAEMIA
     Dosage: 20 MILLIGRAM DAILY;
     Route: 048
     Dates: start: 20110215
  3. VALACICLOVIR TEVA 500 MG COMPRIMIDOS RECUBIERTOS CON PELICULA EFG [Suspect]
     Active Substance: VALACYCLOVIR HYDROCHLORIDE
     Indication: OPHTHALMIC HERPES SIMPLEX
     Dosage: 1000 MILLIGRAM DAILY;
     Route: 048
     Dates: start: 20140702, end: 20140705
  4. ACIDO ACETILSALICILICO CINFA 100 MG COMPRIMIDOS GASTRORRESISTENTES EFG [Concomitant]
     Dosage: 100 MILLIGRAM DAILY;
     Route: 048
     Dates: start: 20121024
  5. NIMODIPINO STADA 30 MG COMPRIMIDOS RECUBIERTOS CON PELICULA EFG [Concomitant]
     Dosage: 60 MILLIGRAM DAILY;
     Route: 048
     Dates: start: 20110215
  6. TRANKIMAZIN 0,5 MG COMPRIMIDOS [Concomitant]
     Dosage: 1.5 MILLIGRAM DAILY;
     Route: 048
     Dates: start: 20140507
  7. REPAGLINIDA CINFA  0,5 MG COMPRIMIDOS EFG [Concomitant]
     Indication: DIABETES MELLITUS
     Dosage: 1.5 MILLIGRAM DAILY;
     Route: 048
     Dates: start: 20121002
  8. PANTOPRAZOL MYLAN 20 MG COMPRIMIDOS GASTRORRESISTENTES EFG [Concomitant]
     Dosage: 20 MILLIGRAM DAILY;
     Route: 048
     Dates: start: 20110330
  9. LIXBEN 10 MG COMPRIMIDOS RECUBIERTOS CON PELICULA EFG [Concomitant]
     Dosage: 10 MILLIGRAM DAILY;
     Route: 048
     Dates: start: 20130626
  10. PAROXETINA STADA 20 MG COMPRIMIDOS RECUBIERTOS CON PELICULA EFG [Concomitant]
     Dosage: 20 MILLIGRAM DAILY;
     Route: 048
     Dates: start: 20110215

REACTIONS (1)
  - Pancreatitis acute [Recovering/Resolving]

NARRATIVE: CASE EVENT DATE: 20140705
